FAERS Safety Report 5301399-4 (Version None)
Quarter: 2007Q2

REPORT INFORMATION
  Report Type: 
  Country: None (occurrence: None)
  Receive Date: 20070418
  Receipt Date: 20070406
  Transmission Date: 20071010
  Serious: Yes (Death, Life-Threatening, Other)
  Sender: FDA-Public Use
  Company Number: JP-PFIZER INC-2007025651

PATIENT
  Sex: Male
  Weight: 80 kg

DRUGS (8)
  1. GABAPEN [Suspect]
     Indication: EPILEPSY
     Route: 048
     Dates: start: 20070209, end: 20070305
  2. CLOBAZAM [Concomitant]
     Indication: EPILEPSY
     Route: 048
  3. HYDANTOL [Concomitant]
     Indication: EPILEPSY
     Dosage: DAILY DOSE:350MG
     Route: 048
  4. EXCEGRAN [Concomitant]
     Indication: EPILEPSY
     Route: 048
  5. DEPAKENE [Concomitant]
     Indication: EPILEPSY
     Route: 048
  6. PHENOBARBITAL TAB [Concomitant]
     Indication: EPILEPSY
     Dosage: DAILY DOSE:75MG
     Route: 048
  7. INTAL [Concomitant]
     Route: 055
  8. ALLEGRA [Concomitant]
     Route: 048

REACTIONS (2)
  - ARRHYTHMIA [None]
  - DEATH [None]
